FAERS Safety Report 24965973 (Version 2)
Quarter: 2025Q1

REPORT INFORMATION
  Report Type: Spontaneous
  Country: AT (occurrence: AT)
  Receive Date: 20250213
  Receipt Date: 20250225
  Transmission Date: 20250409
  Serious: Yes (Other)
  Sender: SERVIER
  Company Number: AT-SERVIER-S25001443

PATIENT

DRUGS (2)
  1. TIBSOVO [Suspect]
     Active Substance: IVOSIDENIB
     Indication: Cholangiocarcinoma
     Dosage: UNK, QD
     Route: 048
     Dates: start: 20231005, end: 20231025
  2. TIBSOVO [Suspect]
     Active Substance: IVOSIDENIB
     Dosage: UNK, QD
     Route: 048
     Dates: start: 20231109

REACTIONS (2)
  - Disease progression [Unknown]
  - Electrocardiogram QT prolonged [Recovered/Resolved]

NARRATIVE: CASE EVENT DATE: 20231025
